FAERS Safety Report 24128712 (Version 1)
Quarter: 2024Q3

REPORT INFORMATION
  Report Type: Spontaneous
  Country: US (occurrence: None)
  Receive Date: 20240723
  Receipt Date: 20240723
  Transmission Date: 20241017
  Serious: No
  Sender: Public
  Company Number: None

PATIENT
  Age: 63 Year
  Sex: Male

DRUGS (2)
  1. POMALYST [Suspect]
     Active Substance: POMALIDOMIDE
     Indication: Plasma cell myeloma
     Dosage: 4MG QD ORAL
     Route: 048
     Dates: start: 20240712, end: 20240717
  2. ACYCLOVIR [Suspect]
     Active Substance: ACYCLOVIR

REACTIONS (4)
  - Dizziness [None]
  - Pain in jaw [None]
  - Toothache [None]
  - Rash [None]

NARRATIVE: CASE EVENT DATE: 20240717
